FAERS Safety Report 8868804 (Version 1)
Quarter: 2012Q4

REPORT INFORMATION
  Report Type: 
  Country: US (occurrence: US)
  Receive Date: 20121026
  Receipt Date: 20121026
  Transmission Date: 20130627
  Serious: No
  Sender: FDA-Public Use
  Company Number: US-AMGEN-USASP2012047573

PATIENT
  Age: 57 Year
  Sex: Male
  Weight: 98.41 kg

DRUGS (5)
  1. ENBREL [Suspect]
     Indication: PRODUCT USED FOR UNKNOWN INDICATION
     Dosage: 25 mg, 2 times/wk
     Route: 058
  2. LISINOPRIL [Concomitant]
     Dosage: 2.5 mg, UNK
  3. SIMVASTATIN [Concomitant]
     Dosage: 10 mg, UNK
  4. GLIPIZIDE [Concomitant]
     Dosage: 5 mg, UNK
  5. ASPIRIN LOW [Concomitant]
     Dosage: 81 mg EC

REACTIONS (1)
  - Corneal opacity [Unknown]
